FAERS Safety Report 4430797-6 (Version None)
Quarter: 2004Q3

REPORT INFORMATION
  Report Type: 
  Country: None (occurrence: None)
  Receive Date: 20040823
  Receipt Date: 20040618
  Transmission Date: 20050211
  Serious: Yes (Hospitalization)
  Sender: FDA-Public Use
  Company Number: 200411352DE

PATIENT
  Age: 75 Year
  Sex: Female
  Weight: 71 kg

DRUGS (18)
  1. CODE UNBROKEN [Suspect]
     Indication: CHRONIC OBSTRUCTIVE AIRWAYS DISEASE
     Route: 058
     Dates: start: 20040601, end: 20040609
  2. CODE UNBROKEN [Suspect]
     Indication: THROMBOSIS PROPHYLAXIS
     Route: 058
     Dates: start: 20040601, end: 20040609
  3. ASPIRIN [Suspect]
     Indication: CORONARY ARTERY DISEASE
     Route: 048
     Dates: start: 20040604, end: 20040609
  4. TORSEMIDE [Suspect]
     Indication: HYPERTENSION
     Route: 048
     Dates: start: 20040608
  5. EUTHYROX [Suspect]
     Indication: HYPOTHYROIDISM
     Route: 048
  6. OXIS [Suspect]
     Indication: CHRONIC OBSTRUCTIVE AIRWAYS DISEASE
     Route: 048
     Dates: start: 20040604
  7. OTHER RESPIRATORY SYSTEM PRODUCTS [Concomitant]
     Indication: CHRONIC OBSTRUCTIVE AIRWAYS DISEASE
     Route: 048
     Dates: start: 20040603
  8. THEOPHYLLINE [Suspect]
     Indication: CHRONIC OBSTRUCTIVE AIRWAYS DISEASE
     Route: 048
  9. PANTOPRAZOL [Suspect]
     Indication: GASTRITIS
     Route: 048
     Dates: start: 20040608
  10. METOPROLOL [Suspect]
     Indication: HYPERTENSION
     Route: 048
     Dates: end: 20040609
  11. DOXETIN [Suspect]
     Indication: DEPRESSION
     Route: 048
     Dates: end: 20040610
  12. ATORVASTATIN [Suspect]
     Indication: HYPERLIPIDAEMIA
     Route: 048
     Dates: end: 20040610
  13. ACC [Suspect]
     Indication: CHRONIC OBSTRUCTIVE AIRWAYS DISEASE
     Route: 048
     Dates: end: 20040609
  14. DITEC [Concomitant]
     Indication: CHRONIC OBSTRUCTIVE AIRWAYS DISEASE
     Route: 048
     Dates: start: 20040609, end: 20040609
  15. ATEMUR ^CASCAN^ [Suspect]
     Indication: CHRONIC OBSTRUCTIVE AIRWAYS DISEASE
     Route: 048
     Dates: start: 20040609, end: 20040609
  16. ALBUTEROL SPIROS [Suspect]
     Indication: CHRONIC OBSTRUCTIVE AIRWAYS DISEASE
     Route: 048
     Dates: start: 20040609, end: 20040609
  17. ZYRTEC [Suspect]
     Indication: CHRONIC OBSTRUCTIVE AIRWAYS DISEASE
     Route: 048
     Dates: start: 20040609, end: 20040611
  18. LASIX [Suspect]
     Indication: HYPERTENSION
     Route: 048
     Dates: start: 20040609, end: 20040611

REACTIONS (2)
  - DRUG INEFFECTIVE [None]
  - HYPERSENSITIVITY [None]
